FAERS Safety Report 17841283 (Version 1)
Quarter: 2020Q2

REPORT INFORMATION
  Report Type: Spontaneous
  Country: DK (occurrence: DK)
  Receive Date: 20200529
  Receipt Date: 20200529
  Transmission Date: 20200714
  Serious: Yes (Other)
  Sender: FDA-Public Use
  Company Number: DK-TEVA-2020-DK-1240450

PATIENT
  Age: 47 Year
  Sex: Male
  Weight: 87 kg

DRUGS (1)
  1. DICLOFENAC RAPID ^TEVA^ [Suspect]
     Active Substance: DICLOFENAC
     Indication: ARTHRALGIA
     Dosage: 150 MG
     Route: 048
     Dates: start: 20200317, end: 20200508

REACTIONS (7)
  - Weight increased [Recovered/Resolved]
  - Rash [Recovered/Resolved]
  - Disturbance in attention [Recovered/Resolved]
  - Haemorrhagic diathesis [Recovered/Resolved]
  - Hypometabolism [Recovered/Resolved]
  - Fatigue [Recovered/Resolved]
  - Skin irritation [Recovered/Resolved]

NARRATIVE: CASE EVENT DATE: 20200317
